FAERS Safety Report 6105414-X (Version None)
Quarter: 2009Q1

REPORT INFORMATION
  Report Type: 
  Country: None (occurrence: None)
  Receive Date: 20090306
  Receipt Date: 20090302
  Transmission Date: 20090719
  Serious: Yes (Hospitalization)
  Sender: FDA-Public Use
  Company Number: JP-ASTRAZENECA-2009AP01069

PATIENT
  Age: 51 Year
  Sex: Female
  Weight: 52 kg

DRUGS (2)
  1. IRESSA [Suspect]
     Indication: LUNG ADENOCARCINOMA
     Route: 048
     Dates: start: 20081210, end: 20090113
  2. EURODIN [Concomitant]
     Indication: INSOMNIA
     Route: 048
     Dates: start: 20070703, end: 20090113

REACTIONS (1)
  - HEPATIC FUNCTION ABNORMAL [None]
